FAERS Safety Report 15557417 (Version 1)
Quarter: 2018Q4

REPORT INFORMATION
  Report Type: Report from Study
  Country: None (occurrence: RO)
  Receive Date: 20181026
  Receipt Date: 20181026
  Transmission Date: 20190205
  Serious: Yes (Hospitalization)
  Sender: FDA-Public Use
  Company Number: RO-ABBVIE-18K-135-2532794-00

PATIENT
  Age: 31 Year
  Sex: Female

DRUGS (1)
  1. HUMIRA [Suspect]
     Active Substance: ADALIMUMAB
     Indication: COLITIS ULCERATIVE
     Route: 058
     Dates: start: 20140528, end: 201809

REACTIONS (4)
  - Frequent bowel movements [Recovered/Resolved]
  - Pyrexia [Recovered/Resolved]
  - Haematochezia [Recovered/Resolved]
  - Gastrointestinal infection [Unknown]

NARRATIVE: CASE EVENT DATE: 201808
